FAERS Safety Report 8869670 (Version 1)
Quarter: 2012Q4

REPORT INFORMATION
  Report Type: Report from Study
  Country: CA (occurrence: CA)
  Receive Date: 20121028
  Receipt Date: 20121028
  Transmission Date: 20130627
  Serious: Yes (Other)
  Sender: FDA-Public Use
  Company Number: CA-JNJFOC-20121009495

PATIENT
  Sex: Female
  Weight: 83.2 kg

DRUGS (3)
  1. REMICADE [Suspect]
     Indication: CROHN^S DISEASE
     Route: 042
     Dates: start: 20101130
  2. REMICADE [Suspect]
     Indication: CROHN^S DISEASE
     Dosage: 12th infusion
     Route: 042
     Dates: start: 20120724
  3. IMURAN [Concomitant]
     Route: 048

REACTIONS (4)
  - Respiratory tract congestion [Recovered/Resolved]
  - Hyperhidrosis [Recovered/Resolved]
  - Productive cough [Recovered/Resolved]
  - Fatigue [Recovered/Resolved]
